FAERS Safety Report 17016474 (Version 3)
Quarter: 2020Q2

REPORT INFORMATION
  Report Type: Spontaneous
  Country: US (occurrence: US)
  Receive Date: 20191111
  Receipt Date: 20200409
  Transmission Date: 20200713
  Serious: No
  Sender: FDA-Public Use
  Company Number: US-PFIZER INC-2019485006

PATIENT
  Age: 83 Year
  Sex: Female

DRUGS (1)
  1. METHOTREXATE SODIUM. [Suspect]
     Active Substance: METHOTREXATE SODIUM
     Dosage: 2.5MG 3,6,5,3 TABLETS WEEKLY
     Route: 048

REACTIONS (3)
  - Drug hypersensitivity [Unknown]
  - Chronic obstructive pulmonary disease [Unknown]
  - White blood cell count decreased [Unknown]
